FAERS Safety Report 19675808 (Version 1)
Quarter: 2021Q3

REPORT INFORMATION
  Report Type: Spontaneous
  Country: IT (occurrence: IT)
  Receive Date: 20210809
  Receipt Date: 20210809
  Transmission Date: 20211014
  Serious: Yes (Life-Threatening)
  Sender: FDA-Public Use
  Company Number: IT-009507513-2108ITA001078

PATIENT
  Age: 66 Year
  Sex: Male
  Weight: 80 kg

DRUGS (3)
  1. INLYTA [Suspect]
     Active Substance: AXITINIB
     Dosage: 10 MILLIGRAM, QD
     Route: 048
     Dates: start: 20210514, end: 20210623
  2. KEYTRUDA [Suspect]
     Active Substance: PEMBROLIZUMAB
     Dosage: 200 MILLIGRAM, CYCLICAL
     Route: 042
     Dates: start: 20210514, end: 20210623
  3. NICIZINA [Concomitant]
     Active Substance: ISONIAZID
     Indication: TUBERCULOSIS
     Dosage: 300 MILLIGRAM
     Route: 048
     Dates: start: 20210501, end: 20210623

REACTIONS (3)
  - Jaundice [Recovering/Resolving]
  - Hypertransaminasaemia [Recovering/Resolving]
  - Hepatitis A [Recovering/Resolving]

NARRATIVE: CASE EVENT DATE: 20210623
